FAERS Safety Report 10099023 (Version 1)
Quarter: 2014Q2

REPORT INFORMATION
  Report Type: Spontaneous
  Country: CA (occurrence: CA)
  Receive Date: 20140423
  Receipt Date: 20140423
  Transmission Date: 20141212
  Serious: Yes (Death)
  Sender: FDA-Public Use
  Company Number: CA-PFIZER INC-2014111518

PATIENT
  Age: 33 Year
  Sex: Female
  Weight: 152 kg

DRUGS (16)
  1. PROPANOLOL HCL [Suspect]
     Dosage: 80 MG, UNK
     Route: 048
  2. AMITRIPTYLINE [Suspect]
     Dosage: 50 MG, UNK
     Route: 048
  3. NORTRIPTYLINE [Suspect]
     Dosage: 50 MG, UNK
     Route: 048
  4. AMITRIPTYLINE [Concomitant]
  5. ASA [Concomitant]
     Dosage: UNK
  6. CLONAZEPAM [Concomitant]
  7. IRBESARTAN [Concomitant]
  8. LENOLTEC WITH CODEINE NO 1 [Concomitant]
  9. LORAZEPAM [Concomitant]
  10. NOVAMILOR [Concomitant]
  11. PANTOPRAZOLE [Concomitant]
  12. PROPANOLOL [Concomitant]
  13. RANITIDINE [Concomitant]
  14. RISPERIDONE [Concomitant]
  15. SEROQUEL XR [Concomitant]
  16. SLOW-K [Concomitant]

REACTIONS (1)
  - Death [Fatal]
